FAERS Safety Report 9630202 (Version 1)
Quarter: 2013Q4

REPORT INFORMATION
  Report Type: Spontaneous
  Country: US (occurrence: US)
  Receive Date: 20131017
  Receipt Date: 20131017
  Transmission Date: 20140711
  Serious: Yes (Other)
  Sender: FDA-Public Use
  Company Number: CHPA2013US015567

PATIENT
  Age: 39 Year
  Sex: Male

DRUGS (18)
  1. GAS-X CHEWABLE TABLETS CHERRY CREME [Suspect]
     Indication: FLATULENCE
     Dosage: 2 DF, PRN
     Route: 048
  2. GAS-X CHEWABLE TABLETS CHERRY CREME [Suspect]
     Indication: NAUSEA
  3. GAS-X CHEWABLE TABLETS CHERRY CREME [Suspect]
     Indication: VOMITING
  4. GAS-X CHEWABLE TABLETS CHERRY CREME [Suspect]
     Indication: OFF LABEL USE
  5. GAS-X CHEWABLE TABLETS UNKNOWN [Suspect]
     Indication: FLATULENCE
     Dosage: UNK DF, UNK
     Route: 048
  6. GAS-X CHEWABLE TABLETS UNKNOWN [Suspect]
     Indication: NAUSEA
  7. GAS-X CHEWABLE TABLETS UNKNOWN [Suspect]
     Indication: VOMITING
  8. GAS-X CHEWABLE TABLETS UNKNOWN [Suspect]
     Indication: OFF LABEL USE
  9. GAS-X EXTRA STRENGTH SOFTGELS [Suspect]
     Indication: FLATULENCE
     Dosage: 1 TO 4 DF, PRN
     Route: 048
  10. GAS-X EXTRA STRENGTH SOFTGELS [Suspect]
     Indication: NAUSEA
  11. GAS-X EXTRA STRENGTH SOFTGELS [Suspect]
     Indication: VOMITING
  12. GAS-X EXTRA STRENGTH SOFTGELS [Suspect]
     Indication: OFF LABEL USE
  13. GAS-X EXTSTR CHEWABLE TABS CHERRY CREME [Suspect]
     Indication: FLATULENCE
     Dosage: 1 DF, PRN
     Route: 048
  14. GAS-X EXTSTR CHEWABLE TABS CHERRY CREME [Suspect]
     Indication: NAUSEA
  15. GAS-X EXTSTR CHEWABLE TABS CHERRY CREME [Suspect]
     Indication: VOMITING
  16. GAS-X EXTSTR CHEWABLE TABS CHERRY CREME [Suspect]
     Indication: OFF LABEL USE
  17. XIFEN [Concomitant]
     Indication: FLATULENCE
  18. ANTIBIOTICS [Concomitant]
     Indication: FLATULENCE

REACTIONS (17)
  - Asthma [Recovered/Resolved]
  - Dyspnoea [Recovered/Resolved]
  - Hypersensitivity [Recovered/Resolved]
  - Food allergy [Recovered/Resolved]
  - Inflammation [Recovered/Resolved]
  - Coeliac disease [Recovered/Resolved]
  - Weight decreased [Recovered/Resolved]
  - Flatulence [Recovered/Resolved]
  - Condition aggravated [Recovered/Resolved]
  - Breath odour [Recovered/Resolved]
  - Abdominal discomfort [Recovered/Resolved]
  - Hunger [Recovered/Resolved]
  - Diarrhoea [Recovered/Resolved]
  - Nausea [Recovered/Resolved]
  - Dysgeusia [Recovered/Resolved]
  - Incorrect dose administered [Unknown]
  - Inappropriate schedule of drug administration [Unknown]
